FAERS Safety Report 5856691-1 (Version None)
Quarter: 2008Q3

REPORT INFORMATION
  Report Type: 
  Country: None (occurrence: None)
  Receive Date: 20080825
  Receipt Date: 20080813
  Transmission Date: 20090109
  Serious: Yes (Hospitalization)
  Sender: FDA-Public Use
  Company Number: SG-PFIZER INC-2008043089

PATIENT
  Sex: Female
  Weight: 72 kg

DRUGS (6)
  1. SU-011,248 [Suspect]
     Indication: BREAST CANCER
     Route: 048
     Dates: start: 20080218, end: 20080421
  2. FRUSEMIDE [Concomitant]
     Route: 048
     Dates: start: 20080502, end: 20080508
  3. ACETAMINOPHEN [Concomitant]
     Route: 048
     Dates: start: 20080515, end: 20080516
  4. METOCLOPRAMIDE [Concomitant]
     Route: 048
     Dates: start: 20080516, end: 20080520
  5. LACTULOSE [Concomitant]
     Route: 048
     Dates: start: 20080518
  6. TRAMADOL HCL [Concomitant]
     Route: 048
     Dates: start: 20080516

REACTIONS (2)
  - DYSPHASIA [None]
  - MUSCULAR WEAKNESS [None]
